FAERS Safety Report 6800747-3 (Version None)
Quarter: 2010Q2

REPORT INFORMATION
  Report Type: 
  Country: None (occurrence: None)
  Receive Date: 20100629
  Receipt Date: 20100621
  Transmission Date: 20101027
  Serious: Yes (Death)
  Sender: FDA-Public Use
  Company Number: US-JNJFOC-20100606918

PATIENT
  Age: 41 Year
  Sex: Male

DRUGS (2)
  1. TYLENOL W/ CODEINE NO. 3 [Suspect]
     Indication: DRUG USE FOR UNKNOWN INDICATION
     Dosage: ATLEAST 6 TABLETS OF TYLENOL 3 DAILY.
     Route: 048
  2. ALCOHOL [Suspect]
     Indication: ALCOHOL ABUSE
     Route: 065

REACTIONS (3)
  - ACUTE HEPATIC FAILURE [None]
  - DRUG TOXICITY [None]
  - INCORRECT DRUG ADMINISTRATION DURATION [None]
